FAERS Safety Report 7960012-8 (Version None)
Quarter: 2011Q4

REPORT INFORMATION
  Report Type: 
  Country: None (occurrence: None)
  Receive Date: 20111206
  Receipt Date: 20111121
  Transmission Date: 20120403
  Serious: Yes (Death, Hospitalization)
  Sender: FDA-Public Use
  Company Number: US-JUTA GMBH-2011-20957

PATIENT
  Age: 50 Year
  Sex: Female

DRUGS (2)
  1. BUPROPION HCL [Suspect]
     Indication: OVERDOSE
     Dosage: 150 MG SINGLE
  2. METOPROLOL TARTRATE [Suspect]
     Indication: OVERDOSE
     Dosage: 80 X 50 MG SINGLE

REACTIONS (6)
  - BRADYCARDIA [None]
  - CARDIOGENIC SHOCK [None]
  - MULTI-ORGAN FAILURE [None]
  - OVERDOSE [None]
  - CARDIAC ARREST [None]
  - HYPOTENSION [None]
